FAERS Safety Report 6318031-3 (Version None)
Quarter: 2009Q3

REPORT INFORMATION
  Report Type: 
  Country: None (occurrence: None)
  Receive Date: 20090821
  Receipt Date: 20090819
  Transmission Date: 20100115
  Serious: No
  Sender: FDA-Public Use
  Company Number: US-B.I. PHARMACEUTICALS,INC./RIDGEFIELD-2009-BP-09770BP

PATIENT

DRUGS (2)
  1. VIRAMUNE [Suspect]
  2. EPZICOM [Suspect]

REACTIONS (3)
  - DYSGEUSIA [None]
  - FATIGUE [None]
  - SALIVARY HYPERSECRETION [None]
